FAERS Safety Report 5528682-1 (Version None)
Quarter: 2007Q4

REPORT INFORMATION
  Report Type: 
  Country: None (occurrence: None)
  Receive Date: 20071129
  Receipt Date: 20071121
  Transmission Date: 20080405
  Serious: Yes (Hospitalization, Other)
  Sender: FDA-Public Use
  Company Number: PHHO2007GB17789

PATIENT
  Age: 70 Year
  Sex: Female

DRUGS (1)
  1. LETROZOLE [Suspect]
     Indication: BREAST CANCER METASTATIC
     Dosage: 2.5 MG, QD
     Route: 048
     Dates: start: 20051025

REACTIONS (5)
  - ENDOMETRIAL HYPERPLASIA [None]
  - HYSTERECTOMY [None]
  - OOPHORECTOMY [None]
  - POSTMENOPAUSAL HAEMORRHAGE [None]
  - UTERINE HAEMORRHAGE [None]
